FAERS Safety Report 17190829 (Version 2)
Quarter: 2020Q3

REPORT INFORMATION
  Report Type: Spontaneous
  Country: AU (occurrence: AU)
  Receive Date: 20191223
  Receipt Date: 20200907
  Transmission Date: 20201102
  Serious: Yes (Other)
  Sender: FDA-Public Use
  Company Number: ALC2019AU002348

PATIENT
  Sex: Male

DRUGS (1)
  1. SYSTANE LIDWIPES [Suspect]
     Active Substance: COSMETICS
     Dosage: UNK
     Route: 065

REACTIONS (3)
  - Eye irritation [Recovered/Resolved]
  - Blindness transient [Recovered/Resolved]
  - Eye pruritus [Recovered/Resolved]

NARRATIVE: CASE EVENT DATE: 20191208
